FAERS Safety Report 7902933-8 (Version None)
Quarter: 2011Q4

REPORT INFORMATION
  Report Type: 
  Country: None (occurrence: None)
  Receive Date: 20111109
  Receipt Date: 20111102
  Transmission Date: 20120403
  Serious: Yes (Other)
  Sender: FDA-Public Use
  Company Number: US-JNJFOC-20111102989

PATIENT
  Age: 73 Year
  Sex: Female
  Weight: 73.94 kg

DRUGS (5)
  1. TYLENOL-500 [Suspect]
     Indication: MIGRAINE
     Dosage: 1-2 TIMES
     Route: 048
  2. TYLENOL-500 [Suspect]
     Indication: PAIN
     Dosage: 1-2 TIMES
     Route: 048
  3. LEVOTHYROXINE SODIUM [Concomitant]
     Indication: THYROID DISORDER
     Route: 065
  4. DICLOFENAC SODIUM [Concomitant]
     Indication: ARTHRITIS
     Route: 065
  5. EYE DROPS NOS [Concomitant]
     Indication: DRY EYE

REACTIONS (3)
  - ABDOMINAL DISCOMFORT [None]
  - WEIGHT DECREASED [None]
  - DIARRHOEA [None]
